FAERS Safety Report 8972601 (Version 1)
Quarter: 2012Q4

REPORT INFORMATION
  Report Type: 
  Country: IT (occurrence: IT)
  Receive Date: 20121219
  Receipt Date: 20121219
  Transmission Date: 20130627
  Serious: Yes (Death, Other)
  Sender: FDA-Public Use
  Company Number: IT-CELGENEUS-083-21880-12120744

PATIENT

DRUGS (5)
  1. REVLIMID [Suspect]
     Indication: MULTIPLE MYELOMA
     Dosage: 10 Milligram
     Route: 048
  2. THALIDOMIDE [Suspect]
     Indication: MULTIPLE MYELOMA
     Dosage: 50 Milligram
     Route: 048
  3. THALIDOMIDE [Suspect]
     Dosage: 100 Milligram
     Route: 048
  4. BORTEZOMIB [Concomitant]
     Indication: MULTIPLE MYELOMA
     Route: 065
  5. BORTEZOMIB [Concomitant]
     Route: 065

REACTIONS (22)
  - Neoplasm [Unknown]
  - Haematological malignancy [Unknown]
  - Cardiac disorder [Unknown]
  - Acute lymphocytic leukaemia [Unknown]
  - Myelodysplastic syndrome [Unknown]
  - Chronic myelomonocytic leukaemia [Unknown]
  - Neoplasm [Unknown]
  - Death [Fatal]
  - Acute myeloid leukaemia [Unknown]
  - Deep vein thrombosis [Unknown]
  - Embolism [Unknown]
  - Neutropenia [Unknown]
  - Anaemia [Unknown]
  - Thrombocytopenia [Unknown]
  - Gastrointestinal disorder [Unknown]
  - Skin toxicity [Unknown]
  - Haematotoxicity [Unknown]
  - Adverse event [Unknown]
  - Renal impairment [Unknown]
  - Neuropathy peripheral [Unknown]
  - Infection [Unknown]
  - Constipation [Unknown]
